FAERS Safety Report 10294688 (Version 2)
Quarter: 2014Q3

REPORT INFORMATION
  Report Type: Spontaneous
  Country: TW (occurrence: TW)
  Receive Date: 20140710
  Receipt Date: 20140710
  Transmission Date: 20150326
  Serious: Yes (Other)
  Sender: FDA-Public Use
  Company Number: TW-ASTRAZENECA-2014SE46493

PATIENT
  Age: 29389 Day
  Sex: Male

DRUGS (3)
  1. CASODEX [Suspect]
     Active Substance: BICALUTAMIDE
     Indication: PROSTATE CANCER
     Route: 048
     Dates: start: 20130601
  2. LHRH AGONIST [Suspect]
     Active Substance: UNSPECIFIED INGREDIENT
     Indication: PROSTATE CANCER
     Dosage: TRIMONTHLY
     Route: 065
  3. DRUG FOR DYSAUTONOMIA [Concomitant]
     Indication: AUTONOMIC NERVOUS SYSTEM IMBALANCE

REACTIONS (3)
  - Lung adenocarcinoma [Unknown]
  - Hydrothorax [Unknown]
  - Dyspnoea [Unknown]

NARRATIVE: CASE EVENT DATE: 20140619
